FAERS Safety Report 4551387-0 (Version None)
Quarter: 2005Q1

REPORT INFORMATION
  Report Type: 
  Country: None (occurrence: None)
  Receive Date: 20050113
  Receipt Date: 20050104
  Transmission Date: 20050727
  Serious: Yes (Death)
  Sender: FDA-Public Use
  Company Number: 200510159GDDC

PATIENT
  Age: 59 Year
  Sex: Female

DRUGS (9)
  1. CEFOTAXIME [Suspect]
     Indication: ASCITES
     Route: 042
     Dates: start: 20031104, end: 20031111
  2. CEFOTAXIME [Suspect]
     Indication: SEPSIS
     Route: 042
     Dates: start: 20031104, end: 20031111
  3. METRONIDAZOLE [Suspect]
     Indication: ASCITES
     Route: 042
     Dates: start: 20031104, end: 20031106
  4. METRONIDAZOLE [Suspect]
     Indication: SEPSIS
     Route: 042
     Dates: start: 20031104, end: 20031106
  5. THIAMINE [Concomitant]
     Indication: MALNUTRITION
     Route: 048
  6. CHLORDIAZEPOXIDE [Concomitant]
     Indication: AGITATION
     Route: 048
  7. FOLIC ACID [Concomitant]
     Indication: MALNUTRITION
     Route: 048
  8. LANSOPRAZOLE [Concomitant]
     Indication: VARICES OESOPHAGEAL
     Route: 048
  9. SPIRONOLACTONE [Concomitant]
     Indication: PORTAL HYPERTENSION
     Route: 048

REACTIONS (1)
  - CLOSTRIDIUM COLITIS [None]
